FAERS Safety Report 9381238 (Version 1)
Quarter: 2013Q3

REPORT INFORMATION
  Report Type: Spontaneous
  Country: US (occurrence: US)
  Receive Date: 20130703
  Receipt Date: 20130703
  Transmission Date: 20140515
  Serious: No
  Sender: FDA-Public Use
  Company Number: US-PFIZER INC-2013195343

PATIENT
  Age: 62 Year
  Sex: Female

DRUGS (6)
  1. LYRICA [Suspect]
     Dosage: 100 MG, AM
     Route: 048
  2. XANAX [Suspect]
     Dosage: UNK
  3. ADVIL [Suspect]
     Dosage: UNK
  4. SUDAFED [Suspect]
     Dosage: UNK
  5. FIORICET [Suspect]
     Dosage: UNK
  6. AMITRIPTYLINE [Suspect]
     Dosage: UNK

REACTIONS (1)
  - Drug hypersensitivity [Unknown]
